FAERS Safety Report 9324280 (Version 3)
Quarter: 2013Q3

REPORT INFORMATION
  Report Type: Report from Study
  Country: US (occurrence: US)
  Receive Date: 20130603
  Receipt Date: 20130724
  Transmission Date: 20140515
  Serious: No
  Sender: FDA-Public Use
  Company Number: US-VERTEX PHARMACEUTICALS INC-2013-006635

PATIENT
  Age: 10 Year
  Sex: Female

DRUGS (11)
  1. VX-770 [Suspect]
     Indication: CYSTIC FIBROSIS
     Dosage: 150 MG, BID
     Route: 048
     Dates: start: 20120306
  2. ZITHROMAX [Concomitant]
     Dosage: 250 MG, QD
     Dates: start: 20130301, end: 20130303
  3. ZITHROMAX [Concomitant]
     Dosage: 250 MG, TIW
     Dates: start: 20130304, end: 201306
  4. PULMOZYME [Concomitant]
     Dosage: 2.5 MG, QD
     Dates: start: 20130219
  5. OMEPRAZOLE [Concomitant]
     Dosage: 20 MG, QD
     Dates: start: 20130214
  6. ALBUTEROL SULFATE [Concomitant]
     Dosage: 1 ML, TID
     Dates: start: 20130117
  7. TOBI [Concomitant]
     Dosage: 300 MG, QOM
     Dates: start: 20121012
  8. CREON [Concomitant]
     Dosage: 3 CAPSULES, TID
     Route: 048
     Dates: start: 20120904
  9. AQUADEKS [Concomitant]
     Dosage: 1 TAB, QD
     Dates: start: 20120904
  10. ALBUTEROL SULFATE [Concomitant]
     Dosage: 180 ?G, PRN
     Dates: start: 20120904
  11. BACTRIM [Concomitant]
     Dosage: 400-80 MG, BID
     Route: 048
     Dates: start: 20130305

REACTIONS (2)
  - Infective pulmonary exacerbation of cystic fibrosis [Recovered/Resolved]
  - Musculoskeletal chest pain [Recovered/Resolved]
